FAERS Safety Report 24697012 (Version 2)
Quarter: 2024Q4

REPORT INFORMATION
  Report Type: Spontaneous
  Country: ES (occurrence: ES)
  Receive Date: 20241204
  Receipt Date: 20241211
  Transmission Date: 20250114
  Serious: Yes (Life-Threatening, Hospitalization)
  Sender: ELI LILLY AND COMPANY
  Company Number: None

PATIENT
  Age: 49 Year
  Sex: Female

DRUGS (5)
  1. OLUMIANT [Suspect]
     Active Substance: BARICITINIB
     Indication: Alopecia areata
     Dosage: 4 MG, DAILY
     Route: 048
     Dates: start: 20240101, end: 20241023
  2. DEFLAZACORT [Concomitant]
     Active Substance: DEFLAZACORT
     Indication: Product used for unknown indication
     Dosage: 15 MG, DAILY
     Route: 048
     Dates: start: 20240101
  3. CLORAZEPATE DIPOTASSIUM [Concomitant]
     Active Substance: CLORAZEPATE DIPOTASSIUM
     Indication: Product used for unknown indication
     Dosage: 5 MG, DAILY
     Route: 048
  4. ANAFRANIL [Concomitant]
     Active Substance: CLOMIPRAMINE HYDROCHLORIDE
     Indication: Product used for unknown indication
     Dosage: 10 MG, DAILY(DRUG WITHDRAWN)
     Route: 048
  5. LEVOTHYROXINE SODIUM [Concomitant]
     Active Substance: LEVOTHYROXINE SODIUM
     Indication: Product used for unknown indication
     Dosage: 100 UG, DAILY
     Route: 048

REACTIONS (1)
  - Acute myocardial infarction [Recovered/Resolved]

NARRATIVE: CASE EVENT DATE: 20241023
